FAERS Safety Report 17699369 (Version 6)
Quarter: 2021Q2

REPORT INFORMATION
  Report Type: Spontaneous
  Country: US (occurrence: US)
  Receive Date: 20200423
  Receipt Date: 20210611
  Transmission Date: 20210716
  Serious: No
  Sender: FDA-Public Use
  Company Number: US-PFIZER INC-2020160735

PATIENT
  Age: 67 Year
  Sex: Female

DRUGS (2)
  1. IBRANCE [Suspect]
     Active Substance: PALBOCICLIB
     Indication: BREAST CANCER FEMALE
     Dosage: 125 MG, CYCLIC (125MG DAILY FOR 21 DAYS ON, 7 DAYS OFF)
     Dates: start: 20200416
  2. REVLIMID [Concomitant]
     Active Substance: LENALIDOMIDE
     Dosage: UNK

REACTIONS (5)
  - Back pain [Unknown]
  - Vision blurred [Unknown]
  - Alopecia [Unknown]
  - Therapeutic response unexpected [Unknown]
  - Fatigue [Not Recovered/Not Resolved]
